FAERS Safety Report 6298946-5 (Version None)
Quarter: 2009Q3

REPORT INFORMATION
  Report Type: 
  Country: None (occurrence: None)
  Receive Date: 20090806
  Receipt Date: 20090803
  Transmission Date: 20100115
  Serious: Yes (Life-Threatening, Hospitalization)
  Sender: FDA-Public Use
  Company Number: NL-JNJFOC-20090800588

PATIENT
  Sex: Male

DRUGS (3)
  1. RISPERDAL QUICKLET [Suspect]
     Indication: SCHIZOPHRENIA
     Route: 065
  2. TEMAZEPAM ACTAVIS [Concomitant]
     Route: 065
  3. THIAMINE HCL [Concomitant]
     Route: 065

REACTIONS (1)
  - HYPONATRAEMIA [None]
